FAERS Safety Report 25158659 (Version 1)
Quarter: 2025Q2

REPORT INFORMATION
  Report Type: Spontaneous
  Country: US (occurrence: US)
  Receive Date: 20250404
  Receipt Date: 20250404
  Transmission Date: 20250716
  Serious: Yes (Hospitalization, Other)
  Sender: GLAXOSMITHKLINE
  Company Number: US-GLAXOSMITHKLINE INC-US2025AMR037034

PATIENT

DRUGS (8)
  1. BENLYSTA [Suspect]
     Active Substance: BELIMUMAB
     Indication: Product used for unknown indication
  2. OTEZLA [Suspect]
     Active Substance: APREMILAST
     Indication: Behcet^s syndrome
     Dosage: 30 MG, BID
     Route: 048
     Dates: start: 202105
  3. ENBREL [Suspect]
     Active Substance: ETANERCEPT
     Indication: Product used for unknown indication
  4. SAPHNELO [Suspect]
     Active Substance: ANIFROLUMAB-FNIA
     Indication: Product used for unknown indication
  5. PROLIA [Suspect]
     Active Substance: DENOSUMAB
     Indication: Osteoporosis
  6. PREDNISONE [Suspect]
     Active Substance: PREDNISONE
     Indication: Product used for unknown indication
     Dosage: 5 MG, QD
     Dates: start: 20221122
  7. BENADRYL [Concomitant]
     Active Substance: DIPHENHYDRAMINE HYDROCHLORIDE
     Indication: Product used for unknown indication
  8. TEMAZEPAM [Concomitant]
     Active Substance: TEMAZEPAM
     Indication: Product used for unknown indication
     Dates: start: 20240730

REACTIONS (22)
  - Nephrolithiasis [Unknown]
  - Systemic lupus erythematosus [Unknown]
  - Sjogren^s syndrome [Unknown]
  - Enchondromatosis [Unknown]
  - Muscle hypertrophy [Unknown]
  - Hyperparathyroidism [Unknown]
  - Pleurisy [Unknown]
  - Ketonuria [Unknown]
  - Bronchospasm [Unknown]
  - Myalgia [Unknown]
  - Lymphadenopathy [Unknown]
  - Upper-airway cough syndrome [Unknown]
  - Temporomandibular pain and dysfunction syndrome [Unknown]
  - Tinnitus [Unknown]
  - Livedo reticularis [Unknown]
  - Increased tendency to bruise [Unknown]
  - Photosensitivity reaction [Unknown]
  - Varicose vein [Unknown]
  - Temperature intolerance [Unknown]
  - Foreign body sensation in eyes [Unknown]
  - Dyspareunia [Unknown]
  - Muscle spasms [Unknown]

NARRATIVE: CASE EVENT DATE: 20210201
